FAERS Safety Report 20678084 (Version 1)
Quarter: 2022Q2

REPORT INFORMATION
  Report Type: Other
  Country: CA (occurrence: CA)
  Receive Date: 20220406
  Receipt Date: 20220406
  Transmission Date: 20220721
  Serious: Yes (Other)
  Sender: FDA-Public Use
  Company Number: CA-APOTEX-2022AP005802

PATIENT

DRUGS (1)
  1. RANITIDINE [Suspect]
     Active Substance: RANITIDINE
     Indication: Product used for unknown indication
     Dosage: UNK
     Route: 065

REACTIONS (4)
  - Pancreatic carcinoma metastatic [Unknown]
  - Metastasis [Unknown]
  - Pancreatic mass [Unknown]
  - Hepatic mass [Unknown]
